FAERS Safety Report 4451761-7 (Version None)
Quarter: 2004Q3

REPORT INFORMATION
  Report Type: 
  Country: None (occurrence: None)
  Receive Date: 20040812
  Receipt Date: 20040504
  Transmission Date: 20050211
  Serious: No
  Sender: FDA-Public Use
  Company Number: USA040566552

PATIENT
  Age: 58 Year
  Sex: Male

DRUGS (6)
  1. CIALIS [Suspect]
     Dosage: 20 MG
     Dates: start: 20040501
  2. FOLIC ACID [Concomitant]
  3. MULTIVITAMIN [Concomitant]
  4. CRESTOR [Concomitant]
  5. INAPHEP INJECTION [Concomitant]
  6. TERAZOSIN HCL [Concomitant]

REACTIONS (3)
  - INSOMNIA [None]
  - RENAL PAIN [None]
  - THERAPEUTIC RESPONSE DECREASED [None]
